FAERS Safety Report 14517616 (Version 3)
Quarter: 2019Q4

REPORT INFORMATION
  Report Type: Spontaneous
  Country: US (occurrence: US)
  Receive Date: 20180212
  Receipt Date: 20191016
  Transmission Date: 20200122
  Serious: No
  Sender: FDA-Public Use
  Company Number: US-PFIZER INC-2018056487

PATIENT
  Age: 65 Year
  Sex: Female
  Weight: 91 kg

DRUGS (2)
  1. LETROZOLE. [Concomitant]
     Active Substance: LETROZOLE
     Dosage: UNK
  2. IBRANCE [Suspect]
     Active Substance: PALBOCICLIB
     Indication: BREAST CANCER METASTATIC
     Dosage: 125 MG, CYCLIC
     Route: 048
     Dates: start: 20171227

REACTIONS (3)
  - Full blood count decreased [Not Recovered/Not Resolved]
  - Nasopharyngitis [Unknown]
  - Vision blurred [Unknown]

NARRATIVE: CASE EVENT DATE: 201801
